FAERS Safety Report 9684039 (Version 2)
Quarter: 2013Q4

REPORT INFORMATION
  Report Type: Spontaneous
  Country: BR (occurrence: BR)
  Receive Date: 20131112
  Receipt Date: 20131112
  Transmission Date: 20140711
  Serious: Yes (Hospitalization)
  Sender: FDA-Public Use
  Company Number: BR-ROCHE-1286421

PATIENT
  Sex: Female

DRUGS (1)
  1. VALIUM [Suspect]
     Indication: INSOMNIA
     Dosage: HALF TABLET, ONCE A DAY BEFORE SLEEP
     Route: 065
     Dates: start: 20131007

REACTIONS (5)
  - Nausea [Recovered/Resolved]
  - Vomiting [Recovered/Resolved]
  - Somnolence [Recovered/Resolved]
  - Feeling abnormal [Recovered/Resolved]
  - Hypoglycaemia [Recovered/Resolved]
